FAERS Safety Report 25472445 (Version 1)
Quarter: 2025Q2

REPORT INFORMATION
  Report Type: Spontaneous
  Country: US (occurrence: US)
  Receive Date: 20250624
  Receipt Date: 20250624
  Transmission Date: 20250717
  Serious: Yes (Disabling, Other)
  Sender: TEVA
  Company Number: US-TEVA-VS-3294992

PATIENT
  Age: 50 Year
  Sex: Female

DRUGS (2)
  1. AUSTEDO [Suspect]
     Active Substance: DEUTETRABENAZINE
     Indication: Product used for unknown indication
     Dosage: 9 MG, 2 TABLETS BY MOUTH TWICE DAILY
     Route: 048
     Dates: start: 202403
  2. AUSTEDO XR [Suspect]
     Active Substance: DEUTETRABENAZINE
     Indication: Product used for unknown indication
     Route: 048
     Dates: start: 202502

REACTIONS (3)
  - Blindness [Unknown]
  - Product use issue [Unknown]
  - Disability [Unknown]
